FAERS Safety Report 16956414 (Version 1)
Quarter: 2019Q4

REPORT INFORMATION
  Report Type: Spontaneous
  Country: CA (occurrence: CA)
  Receive Date: 20191024
  Receipt Date: 20191024
  Transmission Date: 20200122
  Serious: Yes (Disabling)
  Sender: FDA-Public Use
  Company Number: CA-PFIZER INC-2019457894

PATIENT
  Age: 58 Year
  Sex: Female
  Weight: 52.15 kg

DRUGS (1)
  1. PAMIDRONATE DISODIUM. [Suspect]
     Active Substance: PAMIDRONATE DISODIUM
     Indication: OSTEOPOROSIS
     Dosage: UNK, EVERY 3 MONTHS
     Route: 041

REACTIONS (6)
  - Myalgia [Recovering/Resolving]
  - Arthralgia [Recovering/Resolving]
  - Pyrexia [Recovering/Resolving]
  - Bedridden [Recovering/Resolving]
  - Bone pain [Recovering/Resolving]
  - Diarrhoea [Recovering/Resolving]
